FAERS Safety Report 14274847 (Version 9)
Quarter: 2018Q3

REPORT INFORMATION
  Report Type: Spontaneous
  Country: IT (occurrence: IT)
  Receive Date: 20171212
  Receipt Date: 20180816
  Transmission Date: 20181010
  Serious: Yes (Other)
  Sender: FDA-Public Use
  Company Number: IT-JNJFOC-20040700546

PATIENT
  Age: 36 Year
  Sex: Female

DRUGS (5)
  1. PARACETAMOL [Suspect]
     Active Substance: ACETAMINOPHEN
     Indication: NEURITIS
     Dosage: 9 G, QD, 8?9 G, QD
     Route: 065
  2. DICLOFENAC [Suspect]
     Active Substance: DICLOFENAC
     Indication: NEURITIS
     Dosage: FOR 8 WEEKS FROM THE 2ND TO THE 3RD MONTH DURINGMOTHER^S PREGNANCY
     Route: 065
  3. NIMESULIDE [Suspect]
     Active Substance: NIMESULIDE
     Indication: NEURITIS
     Dosage: 1 DF=100?200MG 3 MONTHS PRIOR TO CONCEPTION TO 1 MONTH AFTER CONCEPTION
     Route: 065
  4. NIMESULIDE [Suspect]
     Active Substance: NIMESULIDE
     Indication: NEURITIS
     Dosage: 1DF: 1 DF=100?200MG 3 MONTHS PRIOR TO CONCEPTION TO 1 MONTH AFTER CONCEPTION
     Route: 065
  5. PARACETAMOL [Suspect]
     Active Substance: ACETAMINOPHEN
     Indication: NEURITIS
     Dosage: 2 G, QD, 1?2 G, QD
     Route: 065

REACTIONS (6)
  - Contraindication to medical treatment [Unknown]
  - Premature delivery [Unknown]
  - Overdose [Unknown]
  - Oligohydramnios [Unknown]
  - Product use issue [Unknown]
  - Maternal exposure during pregnancy [Unknown]
